FAERS Safety Report 9491738 (Version 3)
Quarter: 2014Q2

REPORT INFORMATION
  Report Type: Spontaneous
  Country: US (occurrence: US)
  Receive Date: 20130919
  Receipt Date: 20140501
  Transmission Date: 20141212
  Serious: Yes (Hospitalization)
  Sender: FDA-Public Use
  Company Number: US-LUNDBECK-DKLU1081693

PATIENT
  Age: 4 Year
  Sex: Male

DRUGS (2)
  1. SABRIL (FOR ORAL SOLUTION) [Suspect]
     Indication: INFANTILE SPASMS
     Route: 048
     Dates: start: 20091230
  2. SABRIL (FOR ORAL SOLUTION) [Suspect]
     Route: 048
     Dates: start: 20091230

REACTIONS (1)
  - Convulsion [Unknown]
